FAERS Safety Report 6874865-8 (Version None)
Quarter: 2010Q3

REPORT INFORMATION
  Report Type: 
  Country: None (occurrence: None)
  Receive Date: 20100723
  Receipt Date: 20100714
  Transmission Date: 20110219
  Serious: Yes (Other)
  Sender: FDA-Public Use
  Company Number: 230157K09CAN

PATIENT
  Sex: Female

DRUGS (5)
  1. REBIF [Suspect]
     Indication: MULTIPLE SCLEROSIS
     Dosage: 44 MCG, 3 IN 1 WK ; 22 MCG, 3 IN 1 WK ;  33 MCG ; 44 MCG ; 33 MCG
     Dates: start: 20090112, end: 20090401
  2. REBIF [Suspect]
     Indication: MULTIPLE SCLEROSIS
     Dosage: 44 MCG, 3 IN 1 WK ; 22 MCG, 3 IN 1 WK ;  33 MCG ; 44 MCG ; 33 MCG
     Dates: start: 20090401, end: 20091201
  3. REBIF [Suspect]
     Indication: MULTIPLE SCLEROSIS
     Dosage: 44 MCG, 3 IN 1 WK ; 22 MCG, 3 IN 1 WK ;  33 MCG ; 44 MCG ; 33 MCG
  4. REBIF [Suspect]
     Indication: MULTIPLE SCLEROSIS
     Dosage: 44 MCG, 3 IN 1 WK ; 22 MCG, 3 IN 1 WK ;  33 MCG ; 44 MCG ; 33 MCG
     Dates: start: 20091201
  5. ADVIL LIQUI-GELS [Concomitant]

REACTIONS (10)
  - ARTHRALGIA [None]
  - ERYTHEMA [None]
  - FATIGUE [None]
  - INFLUENZA LIKE ILLNESS [None]
  - INJECTION SITE HAEMATOMA [None]
  - MALAISE [None]
  - MULTIPLE SCLEROSIS RELAPSE [None]
  - MUSCULOSKELETAL STIFFNESS [None]
  - MYALGIA [None]
  - OPTIC NEURITIS [None]
